FAERS Safety Report 13871286 (Version 1)
Quarter: 2017Q3

REPORT INFORMATION
  Report Type: Report from Study
  Country: US (occurrence: US)
  Receive Date: 20170816
  Receipt Date: 20170816
  Transmission Date: 20171127
  Serious: Yes (Other)
  Sender: FDA-Public Use
  Company Number: US-SHIRE-US201716145

PATIENT
  Age: 23 Year
  Sex: Male

DRUGS (2)
  1. NATPARA (PARATHYROID HORMONE) [Suspect]
     Active Substance: PARATHYROID HORMONE
     Indication: HYPOPARATHYROIDISM
     Dosage: 50 ?G, 1X/DAY:QD
     Route: 058
     Dates: start: 20170425, end: 2017
  2. NATPARA (PARATHYROID HORMONE) [Suspect]
     Active Substance: PARATHYROID HORMONE
     Dosage: 25 ?G, 1X/DAY:QD
     Route: 058
     Dates: start: 20170717

REACTIONS (8)
  - Confusional state [Unknown]
  - Lethargy [Unknown]
  - Somnolence [Unknown]
  - Blood calcium increased [Unknown]
  - Drug ineffective [Unknown]
  - Blood calcium decreased [Recovering/Resolving]
  - Depression [Unknown]
  - Drug dose omission [Recovering/Resolving]

NARRATIVE: CASE EVENT DATE: 20170626
